FAERS Safety Report 14068137 (Version 1)
Quarter: 2017Q4

REPORT INFORMATION
  Report Type: Spontaneous
  Country: US (occurrence: US)
  Receive Date: 20171009
  Receipt Date: 20171009
  Transmission Date: 20180321
  Serious: No
  Sender: FDA-Public Use
  Company Number: None

PATIENT
  Age: 70 Year
  Sex: Female
  Weight: 78.3 kg

DRUGS (22)
  1. COQ10 [Concomitant]
     Active Substance: UBIDECARENONE
  2. VASOTEC [Concomitant]
     Active Substance: ENALAPRIL MALEATE
  3. ZOFRAN [Concomitant]
     Active Substance: ONDANSETRON HYDROCHLORIDE
  4. ELMIRON [Concomitant]
     Active Substance: PENTOSAN POLYSULFATE SODIUM
  5. BACLOPHEN [Concomitant]
  6. THYROID HORMONES [Concomitant]
     Active Substance: UNSPECIFIED INGREDIENT
  7. TUMS [Concomitant]
     Active Substance: CALCIUM CARBONATE
  8. PROGESTERONE. [Concomitant]
     Active Substance: PROGESTERONE
  9. IPRATROPIUM NASAL SPRAY [Concomitant]
     Active Substance: IPRATROPIUM
  10. TURMERIC [Concomitant]
     Active Substance: HERBALS\TURMERIC
  11. ATOROVASTIN 40 MG [Suspect]
     Active Substance: ATORVASTATIN
     Indication: HYPERLIPIDAEMIA
     Dosage: ?          QUANTITY:1 TABLET(S);?
     Route: 048
     Dates: start: 20170807, end: 20170919
  12. KRILL OIL [Concomitant]
     Active Substance: DIETARY SUPPLEMENT
  13. NUCYNTA [Concomitant]
     Active Substance: TAPENTADOL HYDROCHLORIDE
  14. LORAZEPAM. [Concomitant]
     Active Substance: LORAZEPAM
  15. VITC [Concomitant]
  16. MULTIVITAMIN [Concomitant]
     Active Substance: VITAMINS
  17. PREMARIN [Concomitant]
     Active Substance: ESTROGENS, CONJUGATED
  18. VISTARIL [Concomitant]
     Active Substance: HYDROXYZINE PAMOATE
  19. REGLAN [Concomitant]
     Active Substance: METOCLOPRAMIDE HYDROCHLORIDE
  20. SPINAL CORD STIMULATOR [Concomitant]
  21. CALCIUM [Concomitant]
     Active Substance: CALCIUM
  22. B VITAMINS [Concomitant]
     Active Substance: CYANOCOBALAMIN\DEXPANTHENOL\NIACINAMIDE\PYRIDOXINE HYDROCHLORIDE\RIBOFLAVIN 5^-PHOSPHATE SODIUM\THIAMINE HYDROCHLORIDE\VITAMIN B COMPLEX

REACTIONS (2)
  - Hepatic enzyme increased [None]
  - Therapy cessation [None]

NARRATIVE: CASE EVENT DATE: 20170919
